FAERS Safety Report 13247721 (Version 3)
Quarter: 2017Q2

REPORT INFORMATION
  Report Type: Report from Study
  Country: IL (occurrence: IL)
  Receive Date: 20170217
  Receipt Date: 20170411
  Transmission Date: 20170830
  Serious: Yes (Other)
  Sender: FDA-Public Use
  Company Number: IL-BIOGEN-2017BI00357874

PATIENT
  Age: 19 Year
  Sex: Male

DRUGS (2)
  1. TECFIDERA [Suspect]
     Active Substance: DIMETHYL FUMARATE
     Indication: MULTIPLE SCLEROSIS
     Dosage: MAINTENANCE DOSE
     Route: 048
     Dates: start: 201412
  2. TECFIDERA [Suspect]
     Active Substance: DIMETHYL FUMARATE
     Route: 065

REACTIONS (9)
  - Haematemesis [Recovered/Resolved]
  - Nausea [Not Recovered/Not Resolved]
  - Gastritis [Unknown]
  - Melaena [Recovered/Resolved]
  - Multiple sclerosis relapse [Unknown]
  - Blood creatine phosphokinase increased [Unknown]
  - Drug administered to patient of inappropriate age [Recovered/Resolved]
  - Helicobacter infection [Unknown]
  - Vomiting [Recovered/Resolved]

NARRATIVE: CASE EVENT DATE: 201412
